FAERS Safety Report 21700088 (Version 1)
Quarter: 2022Q4

REPORT INFORMATION
  Report Type: Spontaneous
  Country: GB (occurrence: GB)
  Receive Date: 20221208
  Receipt Date: 20221208
  Transmission Date: 20230112
  Serious: No
  Sender: FDA-Public Use
  Company Number: None

PATIENT

DRUGS (27)
  1. SOTROVIMAB [Suspect]
     Active Substance: SOTROVIMAB
     Indication: Product used for unknown indication
     Dosage: UNK (500MG/8ML SOLUTION FOR INFUSION VIALS)
     Route: 042
     Dates: start: 20221128
  2. TACROLIMUS [Concomitant]
     Active Substance: TACROLIMUS
     Indication: Ill-defined disorder
     Dosage: UNK UNK, BID
     Route: 065
     Dates: start: 20220804
  3. AMLODIPINE [Concomitant]
     Active Substance: AMLODIPINE BESYLATE
     Indication: Ill-defined disorder
     Dosage: 1 DF, QD
     Route: 065
     Dates: start: 20220804
  4. ASPIRIN [Concomitant]
     Active Substance: ASPIRIN
     Indication: Ill-defined disorder
     Dosage: 1 DF, QD
     Route: 065
     Dates: start: 20220804
  5. ATORVASTATIN [Concomitant]
     Active Substance: ATORVASTATIN
     Indication: Ill-defined disorder
     Dosage: 1 DF, QD
     Route: 065
     Dates: start: 20220804
  6. BISOPROLOL [Concomitant]
     Active Substance: BISOPROLOL
     Indication: Ill-defined disorder
     Dosage: 1 DF, QD
     Route: 065
     Dates: start: 20220804
  7. ISOSORBIDE MONONITRATE [Concomitant]
     Active Substance: ISOSORBIDE MONONITRATE
     Indication: Ill-defined disorder
     Dosage: 2 DF, QD
     Route: 065
     Dates: start: 20220804
  8. CITALOPRAM [Concomitant]
     Active Substance: CITALOPRAM HYDROBROMIDE
     Indication: Ill-defined disorder
     Dosage: 1 DF, QD
     Route: 065
     Dates: start: 20220804
  9. NON-MEDICINAL PRODUCTS [Concomitant]
     Indication: Ill-defined disorder
     Dosage: UNK, USE AS DIRECTED
     Route: 065
     Dates: start: 20220804
  10. NON-MEDICINAL PRODUCTS [Concomitant]
     Dosage: UNK, USE AS DIRECTED
     Route: 065
     Dates: start: 20220804, end: 20221025
  11. NON-MEDICINAL PRODUCTS [Concomitant]
     Dosage: UNK, USE AS DIRECTED
     Route: 065
     Dates: start: 20220804
  12. NON-MEDICINAL PRODUCTS [Concomitant]
     Dosage: UNK, USE AS DIRECTED
     Route: 065
     Dates: start: 20220804
  13. NON-MEDICINAL PRODUCTS [Concomitant]
     Dosage: UNK, USE AS DIRECTED
     Route: 065
     Dates: start: 20220804
  14. NON-MEDICINAL PRODUCTS [Concomitant]
     Dosage: UNK, USE AS DIRECTED
     Route: 065
     Dates: start: 20220804
  15. EZETIMIBE [Concomitant]
     Active Substance: EZETIMIBE
     Indication: Ill-defined disorder
     Dosage: 1 DF, QD
     Route: 065
     Dates: start: 20220804
  16. FAMOTIDINE [Concomitant]
     Active Substance: FAMOTIDINE
     Indication: Ill-defined disorder
     Dosage: 1 DF, QD
     Route: 065
     Dates: start: 20220804
  17. FIASP [Concomitant]
     Active Substance: INSULIN ASPART
     Indication: Ill-defined disorder
     Dosage: UNK, USE AS DIRECTED
     Route: 065
     Dates: start: 20220804
  18. FOLIC ACID [Concomitant]
     Active Substance: FOLIC ACID
     Indication: Ill-defined disorder
     Dosage: 1 DF, QD
     Route: 065
     Dates: start: 20220804
  19. GABAPENTIN [Concomitant]
     Active Substance: GABAPENTIN
     Indication: Ill-defined disorder
     Dosage: UNK (TAKE TWO IN THE MORNING, ONE IN THE AFTERNOON A)
     Route: 065
     Dates: start: 20220804
  20. ONEALFA [Concomitant]
     Active Substance: ALFACALCIDOL
     Indication: Ill-defined disorder
     Dosage: 2 DF, QD
     Route: 065
     Dates: start: 20220804
  21. ACETAMINOPHEN [Concomitant]
     Active Substance: ACETAMINOPHEN
     Indication: Ill-defined disorder
     Dosage: UNK UNK, QID, TAKE 1 OR 2 4 TIMES/DAY
     Route: 065
     Dates: start: 20220804
  22. QUININE [Concomitant]
     Active Substance: QUININE
     Indication: Ill-defined disorder
     Dosage: 1 DF, QD (ONE AT NIGHT)
     Route: 065
     Dates: start: 20220804
  23. SENNA [Concomitant]
     Active Substance: SENNA LEAF\SENNOSIDES\SENNOSIDES A AND B
     Indication: Ill-defined disorder
     Dosage: 2 DF, QD (2 AT NIGHT )
     Route: 065
     Dates: start: 20220804
  24. SODIUM CHLORIDE [Concomitant]
     Active Substance: SODIUM CHLORIDE
     Indication: Ill-defined disorder
     Dosage: UNK,FLUSH VENFLON
     Route: 065
     Dates: start: 20221128, end: 20221129
  25. SODIUM PICOSULFATE [Concomitant]
     Active Substance: SODIUM PICOSULFATE
     Indication: Ill-defined disorder
     Dosage: 5 ML, QD (5ML AT NIGHT)
     Route: 065
     Dates: start: 20220804
  26. TRAMADOL [Concomitant]
     Active Substance: TRAMADOL
     Indication: Ill-defined disorder
     Dosage: UNK, TAKE 1 OR 2 AS DIRECTED
     Route: 065
     Dates: start: 20220804
  27. TRESIBA [Concomitant]
     Active Substance: INSULIN DEGLUDEC
     Indication: Ill-defined disorder
     Dosage: UNK, USE AS DIRECTED BY DIABETIC CLINIC.
     Route: 065
     Dates: start: 20220804

REACTIONS (1)
  - Dyspnoea [Recovered/Resolved]

NARRATIVE: CASE EVENT DATE: 20221202
